FAERS Safety Report 4318663-8 (Version None)
Quarter: 2004Q1

REPORT INFORMATION
  Report Type: 
  Country: None (occurrence: None)
  Receive Date: 20040315
  Receipt Date: 20040308
  Transmission Date: 20041129
  Serious: Yes (Hospitalization, Other)
  Sender: FDA-Public Use
  Company Number: 2004-01-0229

PATIENT

DRUGS (6)
  1. INTRON A [Suspect]
     Indication: MALIGNANT MELANOMA
     Dosage: 20 MIU TIW
     Dates: start: 20031125
  2. IRON TABLETS [Concomitant]
  3. PLAVIX [Concomitant]
  4. ANTIHYPERTENSIVE AGENT [Concomitant]
  5. MAXOLON [Concomitant]
  6. SOMAC (PANTOPRAZOLE) [Concomitant]

REACTIONS (10)
  - FATIGUE [None]
  - FLUID RETENTION [None]
  - GOUT [None]
  - GROIN INFECTION [None]
  - HUNGER [None]
  - INTESTINAL FUNCTIONAL DISORDER [None]
  - NAUSEA [None]
  - NEPHROLITHIASIS [None]
  - SEPSIS [None]
  - WEIGHT DECREASED [None]
